FAERS Safety Report 17854533 (Version 3)
Quarter: 2020Q4

REPORT INFORMATION
  Report Type: Spontaneous
  Country: ES (occurrence: ES)
  Receive Date: 20200603
  Receipt Date: 20201215
  Transmission Date: 20210113
  Serious: Yes (Hospitalization, Other)
  Sender: FDA-Public Use
  Company Number: ES-MYLANLABS-2020M1048592

PATIENT
  Age: 45 Year
  Sex: Female

DRUGS (5)
  1. FENOFIBRATE. [Concomitant]
     Active Substance: FENOFIBRATE
     Indication: NEUROENDOCRINE TUMOUR
     Dosage: 145 MG, Q24H
     Route: 065
     Dates: start: 201810
  2. EVEROLIMUS. [Suspect]
     Active Substance: EVEROLIMUS
     Dosage: 5 MILLIGRAM, QD
     Route: 065
     Dates: start: 201804
  3. EVEROLIMUS. [Suspect]
     Active Substance: EVEROLIMUS
     Indication: NEUROENDOCRINE TUMOUR
     Dosage: 10 MILLIGRAM, QD
     Route: 065
     Dates: start: 201706, end: 201711
  4. EVEROLIMUS. [Suspect]
     Active Substance: EVEROLIMUS
     Indication: INTESTINAL ADENOCARCINOMA
     Dosage: 10 MG, QD
     Route: 065
     Dates: start: 201712
  5. EVEROLIMUS. [Suspect]
     Active Substance: EVEROLIMUS
     Dosage: 5 MILLIGRAM, QD
     Dates: start: 201810

REACTIONS (4)
  - Pancreatitis acute [Recovered/Resolved]
  - Blood triglycerides increased [Recovered/Resolved]
  - Ileus paralytic [Recovering/Resolving]
  - Hypertriglyceridaemia [Recovered/Resolved]

NARRATIVE: CASE EVENT DATE: 201711
